FAERS Safety Report 17186782 (Version 2)
Quarter: 2019Q4

REPORT INFORMATION
  Report Type: Report from Study
  Country: US (occurrence: US)
  Receive Date: 20191220
  Receipt Date: 20191231
  Transmission Date: 20200122
  Serious: No
  Sender: FDA-Public Use
  Company Number: US-BAUSCH-BL-2019-065249

PATIENT
  Sex: Male
  Weight: 108.05 kg

DRUGS (2)
  1. SILIQ [Suspect]
     Active Substance: BRODALUMAB
     Indication: PRODUCT USE IN UNAPPROVED INDICATION
     Dosage: RESTARTED ABOUT 2 MONTHS AGO
     Route: 030
     Dates: start: 2019
  2. SILIQ [Suspect]
     Active Substance: BRODALUMAB
     Indication: PSORIATIC ARTHROPATHY
     Dosage: AS DIRECTED. ONE DOSE (210MG) WEEKLY FOR 2 WEEKS, THEN 1 DOSE WEEKLY THEREAFTER.
     Route: 030
     Dates: start: 201901, end: 2019

REACTIONS (2)
  - Intentional product use issue [Unknown]
  - Product use in unapproved indication [Unknown]

NARRATIVE: CASE EVENT DATE: 2019
